FAERS Safety Report 8136788-6 (Version None)
Quarter: 2012Q1

REPORT INFORMATION
  Report Type: 
  Country: None (occurrence: None)
  Receive Date: 20120214
  Receipt Date: 20120209
  Transmission Date: 20120608
  Serious: Yes (Other)
  Sender: FDA-Public Use
  Company Number: US-PFIZER INC-2012036721

PATIENT
  Sex: Female

DRUGS (1)
  1. LYRICA [Suspect]
     Dosage: 75 MG, SINGLE

REACTIONS (7)
  - SYNCOPE [None]
  - NAUSEA [None]
  - HYPERHIDROSIS [None]
  - FALL [None]
  - TONGUE HAEMORRHAGE [None]
  - TONGUE BITING [None]
  - ASTHENIA [None]
